FAERS Safety Report 8974919 (Version 3)
Quarter: 2013Q3

REPORT INFORMATION
  Report Type: Spontaneous
  Country: US (occurrence: US)
  Receive Date: 20121220
  Receipt Date: 20130819
  Transmission Date: 20140515
  Serious: Yes (Hospitalization, Other)
  Sender: FDA-Public Use
  Company Number: US-BAYER-2012-133004

PATIENT
  Age: 45 Year
  Sex: Female
  Weight: 111.11 kg

DRUGS (6)
  1. YAZ [Suspect]
     Indication: CONTRACEPTION
  2. YASMIN [Suspect]
     Indication: CONTRACEPTION
  3. AMOXICILLIN W/CLAVULANIC ACID [Concomitant]
     Dosage: UNK
     Dates: start: 20110513
  4. AUGMENTIN [Concomitant]
     Dosage: 875/125 MG BID
  5. LORATADIN [Concomitant]
     Dosage: 20 MG, DAILY
     Dates: start: 20110517
  6. CLARITIN [Concomitant]
     Dosage: 10 MG, DAILY
     Route: 048

REACTIONS (4)
  - Pulmonary embolism [None]
  - Deep vein thrombosis [None]
  - Deep vein thrombosis [Recovered/Resolved]
  - Cholelithiasis [None]
